FAERS Safety Report 22269826 (Version 1)
Quarter: 2023Q2

REPORT INFORMATION
  Report Type: Spontaneous
  Country: FR (occurrence: FR)
  Receive Date: 20230501
  Receipt Date: 20230501
  Transmission Date: 20230721
  Serious: Yes (Hospitalization)
  Sender: FDA-Public Use
  Company Number: None

PATIENT
  Age: 66 Year
  Sex: Female
  Weight: 76 kg

DRUGS (3)
  1. MVASI [Suspect]
     Active Substance: BEVACIZUMAB-AWWB
     Indication: Colorectal adenocarcinoma
     Dosage: 375 MILLIGRAM, CYCLICAL
     Route: 040
     Dates: start: 20230328
  2. LEUCOVORIN CALCIUM [Suspect]
     Active Substance: LEUCOVORIN CALCIUM
     Indication: Colorectal adenocarcinoma
     Dosage: 360 MILLIGRAM/175 MG/17.5 ML, CYCLICAL
     Route: 040
     Dates: start: 20230328
  3. OXALIPLATIN [Suspect]
     Active Substance: OXALIPLATIN
     Indication: Colorectal adenocarcinoma
     Dosage: 115 MILLIGRAM, CYCLICAL
     Route: 040
     Dates: start: 20230328

REACTIONS (1)
  - Type I hypersensitivity [Recovered/Resolved]

NARRATIVE: CASE EVENT DATE: 20230328
